FAERS Safety Report 6841304-2 (Version None)
Quarter: 2010Q3

REPORT INFORMATION
  Report Type: 
  Country: None (occurrence: None)
  Receive Date: 20100709
  Receipt Date: 20100527
  Transmission Date: 20110219
  Serious: Yes (Life-Threatening, Hospitalization)
  Sender: FDA-Public Use
  Company Number: 003309

PATIENT
  Age: 48 Year
  Sex: Male

DRUGS (5)
  1. LACOSAMIDE [Suspect]
     Indication: COMPLEX PARTIAL SEIZURES
     Dosage: 50MG BID FOR TWO WEEKS, ORAL), (100 MG BID, FOR 2 WEEKS ORAL), (150MG BID, FOR 2 WEEKS ORAL), (200MG
     Route: 048
     Dates: start: 20090609
  2. TEGRETOL [Suspect]
     Indication: COMPLEX PARTIAL SEIZURES
     Dosage: 800MG OD ORAL
  3. LAMOTRIGINE [Suspect]
     Indication: COMPLEX PARTIAL SEIZURES
     Dosage: 200MG QD ORAL, 300MG QD ORAL
     Dates: end: 20091105
  4. LAMOTRIGINE [Suspect]
     Indication: COMPLEX PARTIAL SEIZURES
     Dosage: 200MG QD ORAL, 300MG QD ORAL
     Dates: start: 20091105
  5. DEPAKOTE [Concomitant]
     Indication: COMPLEX PARTIAL SEIZURES
     Dosage: 2500 MG QD ORAL
     Route: 048

REACTIONS (4)
  - CHEST DISCOMFORT [None]
  - ELECTROCARDIOGRAM ABNORMAL [None]
  - ELECTROCARDIOGRAM ST SEGMENT ELEVATION [None]
  - VENTRICULAR TACHYCARDIA [None]
